FAERS Safety Report 21524251 (Version 11)
Quarter: 2024Q1

REPORT INFORMATION
  Report Type: Report from Study
  Country: HR (occurrence: HR)
  Receive Date: 20221029
  Receipt Date: 20240122
  Transmission Date: 20240410
  Serious: Yes (Hospitalization, Other)
  Sender: FDA-Public Use
  Company Number: HR-NOVARTISPH-NVSC2022HR241465

PATIENT
  Sex: Male

DRUGS (9)
  1. COSENTYX [Suspect]
     Active Substance: SECUKINUMAB
     Indication: Axial spondyloarthritis
     Dosage: 300 MG (2X150 MG), QMO
     Route: 065
     Dates: start: 201906, end: 202209
  2. METOPIRONE [Concomitant]
     Active Substance: METYRAPONE
     Indication: Product used for unknown indication
     Dosage: 250 MG (3, 2, 1)
     Route: 065
  3. METOPIRONE [Concomitant]
     Active Substance: METYRAPONE
     Dosage: 250 MG (4, 3, 2)
     Route: 065
  4. CELECOXIB [Concomitant]
     Active Substance: CELECOXIB
     Indication: Product used for unknown indication
     Dosage: 200 MG, QD (1X1)
     Route: 065
  5. CONTROLOC [Concomitant]
     Active Substance: PANTOPRAZOLE SODIUM
     Indication: Product used for unknown indication
     Dosage: 40 MG, QD (1X1)
     Route: 065
  6. AMLOPIN [Concomitant]
     Indication: Product used for unknown indication
     Dosage: 2.5 MG, QD (1X1)
     Route: 065
  7. SULFASALAZINE [Concomitant]
     Active Substance: SULFASALAZINE
     Indication: Product used for unknown indication
     Dosage: UNK
     Route: 065
  8. METYRAPONE [Concomitant]
     Active Substance: METYRAPONE
     Indication: Product used for unknown indication
     Dosage: 12 DOSAGE FORM, QD
     Route: 065
  9. METYRAPONE [Concomitant]
     Active Substance: METYRAPONE
     Dosage: 1 DOSAGE FORM (4-4-3)
     Route: 065

REACTIONS (3)
  - Pituitary-dependent Cushing^s syndrome [Not Recovered/Not Resolved]
  - Ectopic ACTH syndrome [Not Recovered/Not Resolved]
  - Temporomandibular joint syndrome [Unknown]
